FAERS Safety Report 4631196-4 (Version None)
Quarter: 2005Q2

REPORT INFORMATION
  Report Type: 
  Country: None (occurrence: None)
  Receive Date: 20050406
  Receipt Date: 20050323
  Transmission Date: 20051028
  Serious: Yes (Hospitalization)
  Sender: FDA-Public Use
  Company Number: USA050290804

PATIENT
  Age: 49 Year
  Sex: Male

DRUGS (1)
  1. CIALIS [Suspect]
     Indication: ERECTILE DYSFUNCTION
     Dosage: 20 MG
     Dates: start: 20040901

REACTIONS (12)
  - ANOREXIA [None]
  - ARTHRITIS [None]
  - DEHYDRATION [None]
  - FEELING ABNORMAL [None]
  - HEPATIC ENZYME INCREASED [None]
  - INFLUENZA LIKE ILLNESS [None]
  - MALAISE [None]
  - MYALGIA [None]
  - NAUSEA [None]
  - OEDEMA PERIPHERAL [None]
  - VIRAL INFECTION [None]
  - WEIGHT DECREASED [None]
